FAERS Safety Report 15724120 (Version 1)
Quarter: 2018Q4

REPORT INFORMATION
  Report Type: Spontaneous
  Country: US (occurrence: US)
  Receive Date: 20181214
  Receipt Date: 20181214
  Transmission Date: 20190205
  Serious: Yes (Hospitalization)
  Sender: FDA-Public Use
  Company Number: US-FRESENIUS KABI-FK201812718

PATIENT
  Age: 22 Year
  Sex: Female

DRUGS (1)
  1. PROGESTERONE INJECTION USP [Suspect]
     Active Substance: PROGESTERONE
     Indication: IMMUNE TOLERANCE INDUCTION
     Dosage: UNKNOWN
     Route: 030

REACTIONS (2)
  - Condition aggravated [Recovered/Resolved]
  - Autoimmune dermatitis [Recovered/Resolved]
